FAERS Safety Report 24132918 (Version 1)
Quarter: 2024Q3

REPORT INFORMATION
  Report Type: Report from Study
  Country: BR (occurrence: BR)
  Receive Date: 20240724
  Receipt Date: 20240724
  Transmission Date: 20241016
  Serious: Yes (Other)
  Sender: BIOVITRUM
  Company Number: BR-AstraZeneca-2023A146898

PATIENT
  Age: 576 Day
  Sex: Male

DRUGS (1)
  1. SYNAGIS [Suspect]
     Active Substance: PALIVIZUMAB
     Indication: Product used for unknown indication
     Route: 030
     Dates: start: 20220801

REACTIONS (3)
  - Pneumonia [Unknown]
  - Cardiomyopathy [Unknown]
  - Medication error [Unknown]

NARRATIVE: CASE EVENT DATE: 20230524
